FAERS Safety Report 14305926 (Version 3)
Quarter: 2018Q1

REPORT INFORMATION
  Report Type: Spontaneous
  Country: US (occurrence: US)
  Receive Date: 20171219
  Receipt Date: 20180131
  Transmission Date: 20180509
  Serious: No
  Sender: FDA-Public Use
  Company Number: US-ACTELION-A-NJ2017-164396

PATIENT
  Age: 64 Year
  Sex: Female
  Weight: 81.63 kg

DRUGS (9)
  1. OPSUMIT [Suspect]
     Active Substance: MACITENTAN
     Indication: PULMONARY ARTERIAL HYPERTENSION
     Dosage: 10 MG, QD
     Route: 048
     Dates: start: 20171206, end: 20171217
  2. MELATONIN [Concomitant]
     Active Substance: MELATONIN
     Dosage: 5 MG, QPM
  3. MULTIVITAMIN [Concomitant]
     Active Substance: VITAMINS
     Dosage: UNK
  4. FISH OIL [Concomitant]
     Active Substance: FISH OIL
     Dosage: UNK
  5. CARDIZEM [Concomitant]
     Active Substance: DILTIAZEM HYDROCHLORIDE
     Dosage: 120 MG, QD
     Dates: start: 201711
  6. ADCIRCA [Concomitant]
     Active Substance: TADALAFIL
  7. TORSEMIDE. [Concomitant]
     Active Substance: TORSEMIDE
     Dosage: 40 MG, UNK
  8. BABY ASPIRIN [Concomitant]
     Active Substance: ASPIRIN
     Dosage: 81 MG, UNK
  9. POTASSIUM [Concomitant]
     Active Substance: POTASSIUM
     Dosage: 40 MG, UNK

REACTIONS (4)
  - Oedema [Not Recovered/Not Resolved]
  - Swelling [Unknown]
  - Oedema peripheral [Recovered/Resolved]
  - Sinus congestion [Unknown]

NARRATIVE: CASE EVENT DATE: 201712
